FAERS Safety Report 6379300-4 (Version None)
Quarter: 2009Q3

REPORT INFORMATION
  Report Type: 
  Country: None (occurrence: None)
  Receive Date: 20090923
  Receipt Date: 20090923
  Transmission Date: 20100115
  Serious: Yes (Life-Threatening)
  Sender: FDA-Public Use
  Company Number: None

PATIENT
  Age: 19 Year
  Sex: Male
  Weight: 72 kg

DRUGS (9)
  1. HYDROMORPHONE [Suspect]
     Indication: PAIN
     Dosage: VAR DOSE 0.5 - 1MG; 1MG/HR IV
     Route: 042
     Dates: start: 20090611, end: 20090612
  2. HEPARIN [Concomitant]
  3. CEFEPIME [Concomitant]
  4. INSULIN [Concomitant]
  5. LABETALOL HCL [Concomitant]
  6. METRONIDAZOLE [Concomitant]
  7. ONDANSETRON [Concomitant]
  8. PROPOFOL [Concomitant]
  9. RANITIDINE [Concomitant]

REACTIONS (3)
  - INFUSION RELATED REACTION [None]
  - NAUSEA [None]
  - RETCHING [None]
